FAERS Safety Report 8283279-8 (Version None)
Quarter: 2012Q2

REPORT INFORMATION
  Report Type: 
  Country: None (occurrence: None)
  Receive Date: 20120413
  Receipt Date: 20120404
  Transmission Date: 20120825
  Serious: Yes (Other)
  Sender: FDA-Public Use
  Company Number: US-BAYER-2011-121225

PATIENT
  Age: 32 Year
  Sex: Female
  Weight: 72.562 kg

DRUGS (3)
  1. MIRENA [Suspect]
     Indication: CONTRACEPTION
     Dosage: 20 MCG/24HR, CONT
     Route: 015
     Dates: start: 20110401, end: 20110921
  2. L-LYSINE [Concomitant]
     Dosage: 1000 MG, UNK
  3. CALCIUM CARBONATE [Concomitant]
     Dosage: 1500 MG, UNK
     Route: 048

REACTIONS (23)
  - BENIGN NEOPLASM OF SKIN [None]
  - SKIN IRRITATION [None]
  - RASH MACULAR [None]
  - PRURITUS [None]
  - BLEPHARITIS [None]
  - FUNGAL INFECTION [None]
  - ACNE [None]
  - ERYTHEMA OF EYELID [None]
  - EXCORIATION [None]
  - DERMATITIS CONTACT [None]
  - ROSACEA [None]
  - HAEMANGIOMA OF SKIN [None]
  - MELANOCYTIC NAEVUS [None]
  - RASH PAPULAR [None]
  - ECZEMA [None]
  - PHOTOSENSITIVITY REACTION [None]
  - CAMPBELL DE MORGAN SPOTS [None]
  - RASH [None]
  - ERYTHEMA [None]
  - SKIN EXFOLIATION [None]
  - PAIN [None]
  - DERMATITIS [None]
  - SKIN DISCOMFORT [None]
